FAERS Safety Report 5590329-6 (Version None)
Quarter: 2008Q1

REPORT INFORMATION
  Report Type: 
  Country: None (occurrence: None)
  Receive Date: 20080109
  Receipt Date: 20080102
  Transmission Date: 20080703
  Serious: Yes (Other)
  Sender: FDA-Public Use
  Company Number: 2008000196

PATIENT
  Sex: Female

DRUGS (1)
  1. LUBRIDERM INTENSE SKIN REPAIR BODY CREAM (NO ACTIVE INGREDIENT) [Suspect]
     Indication: DRY SKIN
     Dosage: TOPICAL
     Route: 061

REACTIONS (2)
  - PAIN [None]
  - SWELLING FACE [None]
